FAERS Safety Report 8193469-0 (Version None)
Quarter: 2012Q1

REPORT INFORMATION
  Report Type: 
  Country: None (occurrence: None)
  Receive Date: 20120308
  Receipt Date: 20120306
  Transmission Date: 20120608
  Serious: Yes (Hospitalization)
  Sender: FDA-Public Use
  Company Number: US-PFIZER INC-2012060163

PATIENT
  Sex: Male
  Weight: 72 kg

DRUGS (4)
  1. GLUCOTROL [Concomitant]
     Dosage: 10 MG, 1X/DAY
  2. SIMVASTATIN [Concomitant]
     Dosage: 20 MG, UNK
  3. NORVASC [Suspect]
     Dosage: 10 MG, 1X/DAY
     Route: 048
  4. GLUCOPHAGE [Concomitant]
     Dosage: 500 MG, 1X/DAY

REACTIONS (1)
  - CEREBROVASCULAR ACCIDENT [None]
